FAERS Safety Report 13528075 (Version 1)
Quarter: 2017Q2

REPORT INFORMATION
  Report Type: Spontaneous
  Country: US (occurrence: US)
  Receive Date: 20170509
  Receipt Date: 20170509
  Transmission Date: 20170830
  Serious: Yes (Other)
  Sender: FDA-Public Use
  Company Number: US-IMPAX LABORATORIES, INC-2016-IPXL-00341

PATIENT
  Age: 70 Year
  Sex: Male

DRUGS (6)
  1. NORTHERA [Suspect]
     Active Substance: DROXIDOPA
     Indication: PRODUCT USED FOR UNKNOWN INDICATION
     Dosage: UNK
     Route: 048
     Dates: start: 20160115
  2. NORTHERA [Suspect]
     Active Substance: DROXIDOPA
     Dosage: 100 MG, 3 /DAY
     Route: 048
     Dates: start: 20160116
  3. NORTHERA [Suspect]
     Active Substance: DROXIDOPA
     Dosage: 100 MG, 2 TABS TID
     Route: 048
     Dates: start: 20160120
  4. FLUDROCORTISONE ACETATE. [Suspect]
     Active Substance: FLUDROCORTISONE ACETATE
     Indication: PRODUCT USED FOR UNKNOWN INDICATION
     Dosage: UNK
     Route: 065
     Dates: end: 20160118
  5. NORTHERA [Suspect]
     Active Substance: DROXIDOPA
     Dosage: 100 MG, 4 TABS TID
     Route: 048
     Dates: start: 20160123
  6. NORTHERA [Suspect]
     Active Substance: DROXIDOPA
     Dosage: 100 MG, 5 TABS TID
     Route: 048
     Dates: start: 20160124

REACTIONS (1)
  - Blood pressure increased [Recovered/Resolved]

NARRATIVE: CASE EVENT DATE: 20160117
